FAERS Safety Report 18454600 (Version 1)
Quarter: 2020Q4

REPORT INFORMATION
  Report Type: Report from Study
  Country: CA (occurrence: CA)
  Receive Date: 20201103
  Receipt Date: 20201103
  Transmission Date: 20210114
  Serious: Yes (Other)
  Sender: FDA-Public Use
  Company Number: CA-AMGEN-CANCT2020004547

PATIENT
  Age: 45 Year
  Sex: Female

DRUGS (2)
  1. AIMOVIG [Suspect]
     Active Substance: ERENUMAB-AOOE
     Indication: MIGRAINE
     Dosage: UNK, QMO
     Route: 058
     Dates: start: 20191211, end: 20201003
  2. AIMOVIG [Suspect]
     Active Substance: ERENUMAB-AOOE
     Dosage: 70 MILLIGRAM, QMO
     Route: 058
     Dates: start: 20191217, end: 20200310

REACTIONS (15)
  - Irritable bowel syndrome [Recovered/Resolved]
  - Gastrointestinal motility disorder [Recovering/Resolving]
  - Constipation [Recovered/Resolved]
  - Anal fissure haemorrhage [Recovered/Resolved]
  - Abnormal faeces [Recovering/Resolving]
  - Gastrointestinal hypomotility [Recovering/Resolving]
  - Decreased appetite [Recovering/Resolving]
  - Abdominal distension [Recovering/Resolving]
  - Rectal haemorrhage [Unknown]
  - Haemorrhoids [Recovered/Resolved]
  - Nausea [Recovering/Resolving]
  - Intestinal obstruction [Unknown]
  - Drug ineffective [Recovered/Resolved]
  - Dyschezia [Recovering/Resolving]
  - Abdominal mass [Unknown]

NARRATIVE: CASE EVENT DATE: 20191224
